FAERS Safety Report 22530672 (Version 1)
Quarter: 2023Q2

REPORT INFORMATION
  Report Type: Spontaneous
  Country: US (occurrence: US)
  Receive Date: 20230607
  Receipt Date: 20230607
  Transmission Date: 20230722
  Serious: No
  Sender: FDA-Public Use
  Company Number: US-SA-SAC20230606000125

PATIENT
  Age: 53 Year
  Sex: Male
  Weight: 89.4 kg

DRUGS (20)
  1. AUBAGIO [Suspect]
     Active Substance: TERIFLUNOMIDE
     Indication: Multiple sclerosis
     Dosage: 14 MG, QD
     Route: 048
  2. ALEVE [Concomitant]
     Active Substance: NAPROXEN SODIUM
  3. FISH OIL [Concomitant]
     Active Substance: FISH OIL
     Dosage: 340-100
  4. TYLENOL [Concomitant]
     Active Substance: ACETAMINOPHEN
  5. VITAMIN B1 [Concomitant]
     Active Substance: THIAMINE HYDROCHLORIDE
  6. VITAMIN C [Concomitant]
     Active Substance: ASCORBIC ACID
  7. VITAMIN D3 [Concomitant]
     Active Substance: CHOLECALCIFEROL
  8. POTASSIUM CITRATE [Concomitant]
     Active Substance: POTASSIUM CITRATE
  9. AZITHROMYCIN [Concomitant]
     Active Substance: AZITHROMYCIN
  10. METHYLPREDNISOLONE [Concomitant]
     Active Substance: METHYLPREDNISOLONE
  11. PREDNISONE [Concomitant]
     Active Substance: PREDNISONE
  12. GABAPENTIN [Concomitant]
     Active Substance: GABAPENTIN
  13. MONTELUKAST SODIUM [Concomitant]
     Active Substance: MONTELUKAST SODIUM
  14. LEVOFLOXACIN [Concomitant]
     Active Substance: LEVOFLOXACIN
  15. CHLORPHENAMINE;HYDROCODONE [Concomitant]
     Dosage: 10-8MG
  16. ALBUTEROL SULFATE [Concomitant]
     Active Substance: ALBUTEROL SULFATE
  17. HYDROCHLOROTHIAZIDE\LISINOPRIL [Concomitant]
     Active Substance: HYDROCHLOROTHIAZIDE\LISINOPRIL
     Dosage: 20-12.5
  18. TIZANIDINE HYDROCHLORIDE [Concomitant]
     Active Substance: TIZANIDINE HYDROCHLORIDE
     Dosage: 4MG
  19. OMEPRAZOLE [Concomitant]
     Active Substance: OMEPRAZOLE
  20. BACLOFEN [Concomitant]
     Active Substance: BACLOFEN

REACTIONS (2)
  - Alopecia [Not Recovered/Not Resolved]
  - Sinusitis [Recovering/Resolving]

NARRATIVE: CASE EVENT DATE: 20230501
